FAERS Safety Report 15285101 (Version 2)
Quarter: 2018Q3

REPORT INFORMATION
  Report Type: Spontaneous
  Country: DE (occurrence: DE)
  Receive Date: 20180816
  Receipt Date: 20180913
  Transmission Date: 20181010
  Serious: Yes (Life-Threatening, Other)
  Sender: FDA-Public Use
  Company Number: DE-CELLTRION INC.-2018DE021800

PATIENT

DRUGS (6)
  1. PREDNISOLONE. [Concomitant]
     Active Substance: PREDNISOLONE
     Route: 065
  2. AZATHIOPRINE. [Concomitant]
     Active Substance: AZATHIOPRINE
     Dosage: 18 MG
     Route: 065
  3. REMSIMA [Suspect]
     Active Substance: INFLIXIMAB
     Indication: CROHN^S DISEASE
     Dosage: 400 MG
     Route: 042
     Dates: start: 20180606, end: 20180606
  4. REMSIMA [Suspect]
     Active Substance: INFLIXIMAB
     Dosage: 400 MG
     Route: 042
     Dates: start: 20180724, end: 20180724
  5. SALOFALK                           /00747601/ [Concomitant]
     Active Substance: MESALAMINE
     Route: 065
  6. REMSIMA [Suspect]
     Active Substance: INFLIXIMAB
     Dosage: 400 MG
     Route: 065
     Dates: start: 20180622, end: 20180622

REACTIONS (1)
  - Rhabdomyolysis [Recovered/Resolved]

NARRATIVE: CASE EVENT DATE: 20180729
